FAERS Safety Report 13599338 (Version 3)
Quarter: 2017Q3

REPORT INFORMATION
  Report Type: Spontaneous
  Country: US (occurrence: US)
  Receive Date: 20170531
  Receipt Date: 20170926
  Transmission Date: 20171127
  Serious: Yes (Hospitalization)
  Sender: FDA-Public Use
  Company Number: US-ALLERGAN-1722143US

PATIENT
  Age: 37 Year
  Sex: Female

DRUGS (7)
  1. FETZIMA [Interacting]
     Active Substance: LEVOMILNACIPRAN HYDROCHLORIDE
     Indication: GRIEF REACTION
  2. TEMAZEPAM. [Concomitant]
     Active Substance: TEMAZEPAM
     Indication: SLEEP DISORDER
     Dosage: 1-2 TABLETS (15 MG), QHS
     Route: 048
  3. FETZIMA [Suspect]
     Active Substance: LEVOMILNACIPRAN HYDROCHLORIDE
     Indication: DEPRESSION
     Dosage: 40 MG, QD
     Route: 048
     Dates: start: 2017
  4. EFFEXOR XR [Concomitant]
     Active Substance: VENLAFAXINE HYDROCHLORIDE
     Dosage: UNK
  5. TRAZODONE [Concomitant]
     Active Substance: TRAZODONE HYDROCHLORIDE
     Indication: SLEEP DISORDER
     Dosage: UNK
  6. XANAX [Concomitant]
     Active Substance: ALPRAZOLAM
     Indication: ANXIETY
     Dosage: 1 MG, BID PRN
     Route: 048
  7. FETZIMA [Interacting]
     Active Substance: LEVOMILNACIPRAN HYDROCHLORIDE
     Indication: ANXIETY

REACTIONS (6)
  - Off label use [Unknown]
  - Drug dose omission [Unknown]
  - Anxiety [Not Recovered/Not Resolved]
  - Drug interaction [Unknown]
  - Suicidal ideation [Recovered/Resolved]
  - Serotonin syndrome [Unknown]

NARRATIVE: CASE EVENT DATE: 2017
